FAERS Safety Report 6579321-2 (Version None)
Quarter: 2010Q1

REPORT INFORMATION
  Report Type: 
  Country: None (occurrence: None)
  Receive Date: 20100209
  Receipt Date: 20100209
  Transmission Date: 20100710
  Serious: No
  Sender: FDA-Public Use
  Company Number: None

PATIENT
  Age: 47 Year
  Sex: Female
  Weight: 79.3795 kg

DRUGS (1)
  1. ZICAM I AM NOT IN POCCESION MY LAWYER HAS IT MY LAWYER HAS IT [Suspect]
     Indication: NASOPHARYNGITIS
     Dosage: AT FIRST SIGNS OF COLD

REACTIONS (4)
  - AGEUSIA [None]
  - ANOSMIA [None]
  - PAIN [None]
  - SINUS DISORDER [None]
